FAERS Safety Report 5675129-0 (Version None)
Quarter: 2008Q1

REPORT INFORMATION
  Report Type: 
  Country: None (occurrence: None)
  Receive Date: 20080320
  Receipt Date: 20080312
  Transmission Date: 20080703
  Serious: Yes (Hospitalization)
  Sender: FDA-Public Use
  Company Number: ZA-ROCHE-546352

PATIENT
  Sex: Female
  Weight: 55 kg

DRUGS (6)
  1. CELLCEPT [Suspect]
     Route: 065
  2. CELLCEPT [Suspect]
     Route: 065
     Dates: start: 20080206
  3. RECORMON [Suspect]
     Dosage: INCREASED DOSE. STRENGTH: 4000. DOSING FREQUENCY: DAILY.
     Route: 058
     Dates: start: 20070801, end: 20080205
  4. RECORMON [Suspect]
     Dosage: 3 TO 4 YEARS THERAPY.
     Route: 058
  5. PROGRAF [Concomitant]
  6. PREDNISOLONE [Concomitant]

REACTIONS (2)
  - ANAEMIA [None]
  - APLASIA PURE RED CELL [None]
